FAERS Safety Report 10471698 (Version 1)
Quarter: 2014Q3

REPORT INFORMATION
  Report Type: Spontaneous
  Country: US (occurrence: US)
  Receive Date: 20140923
  Receipt Date: 20140923
  Transmission Date: 20150326
  Serious: Yes (Death, Hospitalization, Other)
  Sender: FDA-Public Use
  Company Number: US-B.I. PHARMACEUTICALS,INC./RIDGEFIELD-2014-BI-44632BP

PATIENT
  Age: 83 Year
  Sex: Female

DRUGS (1)
  1. PRADAXA [Suspect]
     Active Substance: DABIGATRAN ETEXILATE MESYLATE
     Indication: ATRIAL FIBRILLATION
     Route: 065

REACTIONS (19)
  - Pancreatitis [Unknown]
  - Hypokalaemia [Unknown]
  - Renal failure acute [Recovered/Resolved]
  - Sick sinus syndrome [Unknown]
  - Asthenia [Unknown]
  - Enterococcal infection [Unknown]
  - Cholecystitis acute [Unknown]
  - Hypoglycaemia [Unknown]
  - Pleural effusion [Recovered/Resolved]
  - Pneumonia [Unknown]
  - Respiratory failure [Unknown]
  - Sepsis [Unknown]
  - Coagulopathy [Unknown]
  - Chronic obstructive pulmonary disease [Unknown]
  - Atrial fibrillation [Fatal]
  - Gastrointestinal haemorrhage [Unknown]
  - Malnutrition [Unknown]
  - Cardiac failure congestive [Fatal]
  - Multi-organ failure [Fatal]

NARRATIVE: CASE EVENT DATE: 201305
